FAERS Safety Report 7943662-4 (Version None)
Quarter: 2011Q4

REPORT INFORMATION
  Report Type: 
  Country: None (occurrence: None)
  Receive Date: 20111128
  Receipt Date: 20111122
  Transmission Date: 20120403
  Serious: Yes (Hospitalization, Other)
  Sender: FDA-Public Use
  Company Number: US-AMGEN-QUU434302

PATIENT
  Age: 48 Year
  Sex: Female
  Weight: 58 kg

DRUGS (30)
  1. DASATINIB [Concomitant]
     Dosage: 100 MG, QD
     Dates: start: 20090101
  2. ACETAMINOPHEN [Concomitant]
  3. LORAZEPAM [Concomitant]
     Dosage: 1 MG, PRN
  4. GLIPIZIDE [Concomitant]
     Dosage: 5 MG, QD
  5. ACYCLOVIR [Concomitant]
     Dosage: 400 MG, BID
  6. MAGNESIUM OXIDE [Concomitant]
     Dosage: 400 MG, BID
  7. BACTRIM [Concomitant]
     Dosage: 1 DF, QOD
  8. MYCOPHENOLATE MOFETIL [Concomitant]
     Dosage: 1000 MG, BID
  9. TACROLIMUS [Concomitant]
     Dosage: 1 MG, QD
  10. MORPHINE SULFATE [Concomitant]
     Dosage: 30 MG, BID
     Route: 048
  11. VACCINES [Concomitant]
  12. POSACONAZOLE [Concomitant]
     Dosage: 200 MG, TID
  13. AZITHROMYCIN [Concomitant]
     Dosage: 600 MG, QWK
  14. ACETAMINOPHEN AND OXYCODONE HCL [Concomitant]
  15. NPLATE [Suspect]
     Indication: IDIOPATHIC THROMBOCYTOPENIC PURPURA
     Dosage: 360 MUG, UNK
     Route: 058
     Dates: start: 20100216, end: 20101227
  16. ASCORBIC ACID [Concomitant]
     Dosage: 500 MG, QD
     Route: 048
  17. TRIMETHOPRIM + SULFAMETHOXAZOLE [Concomitant]
     Dosage: UNK UNK, 3 TIMES/WK
  18. TRIAMCINOLONE [Concomitant]
     Dosage: .5 %, BID
     Route: 061
  19. INSULIN [Concomitant]
     Dosage: UNK UNK, PRN
  20. ONDANSETRON HYDROCHLORIDE [Concomitant]
     Dosage: 4 MG, PRN
  21. PERCOCET [Concomitant]
     Dosage: 1 DF, PRN
  22. MULTI-VITAMINS [Concomitant]
  23. DIPHENHYDRAMINE HCL [Concomitant]
  24. GABAPENTIN [Concomitant]
     Dosage: 300 MG, TID
  25. SIROLIMUS [Concomitant]
     Dosage: 1 MG, QD
  26. POTASSIUM CHLORIDE [Concomitant]
     Dosage: 20 MEQ, QD
  27. NPLATE [Suspect]
     Indication: THROMBOCYTOPENIA
  28. PREDNISONE TAB [Concomitant]
  29. URSODIOL [Concomitant]
     Dosage: 300 MG, BID
  30. OXYCODONE HCL [Concomitant]
     Dosage: 10 MG, PRN

REACTIONS (21)
  - MYOPATHY [None]
  - GRAFT VERSUS HOST DISEASE [None]
  - FATIGUE [None]
  - ANXIETY [None]
  - NAUSEA [None]
  - BLOOD POTASSIUM INCREASED [None]
  - PURPURA [None]
  - HEPATIC ENZYME INCREASED [None]
  - INSOMNIA [None]
  - ILIAC ARTERY THROMBOSIS [None]
  - PAIN IN EXTREMITY [None]
  - OEDEMA PERIPHERAL [None]
  - ACARODERMATITIS [None]
  - DECREASED APPETITE [None]
  - WHEEZING [None]
  - PETECHIAE [None]
  - DEEP VEIN THROMBOSIS [None]
  - ASTHENIA [None]
  - HYPOAESTHESIA [None]
  - PAIN [None]
  - MUSCULAR WEAKNESS [None]
